FAERS Safety Report 10548843 (Version 4)
Quarter: 2015Q3

REPORT INFORMATION
  Report Type: Spontaneous
  Country: US (occurrence: US)
  Receive Date: 20141028
  Receipt Date: 20150929
  Transmission Date: 20151125
  Serious: Yes (Hospitalization, Other)
  Sender: FDA-Public Use
  Company Number: US-BAYER-2014-156425

PATIENT
  Age: 28 Year
  Sex: Female
  Weight: 83.9 kg

DRUGS (1)
  1. MIRENA [Suspect]
     Active Substance: LEVONORGESTREL
     Indication: CONTRACEPTION
     Dosage: 20 MCG/24HR, CONT
     Route: 015
     Dates: start: 20121119, end: 20131210

REACTIONS (7)
  - Device breakage [None]
  - Device issue [None]
  - Pain [None]
  - Injury [None]
  - Complication of device removal [None]
  - Uterine perforation [None]
  - Emotional distress [None]

NARRATIVE: CASE EVENT DATE: 201212
